FAERS Safety Report 23324812 (Version 1)
Quarter: 2023Q4

REPORT INFORMATION
  Report Type: Spontaneous
  Country: US (occurrence: US)
  Receive Date: 20231221
  Receipt Date: 20231221
  Transmission Date: 20240110
  Serious: No
  Sender: FDA-Public Use
  Company Number: US-OPELLA-2023OHG018736

PATIENT
  Age: 71 Year
  Sex: Female

DRUGS (2)
  1. DULCOLAX SOFT CHEWS MIXED BERRY [Suspect]
     Active Substance: MAGNESIUM HYDROXIDE
     Indication: Constipation
  2. DULCOLAX SOFT CHEWS MIXED BERRY [Suspect]
     Active Substance: MAGNESIUM HYDROXIDE
     Indication: Pain

REACTIONS (2)
  - Therapeutic product effect delayed [Unknown]
  - No adverse event [Unknown]
